FAERS Safety Report 22522488 (Version 1)
Quarter: 2023Q2

REPORT INFORMATION
  Report Type: Spontaneous
  Country: US (occurrence: US)
  Receive Date: 20230605
  Receipt Date: 20230605
  Transmission Date: 20230721
  Serious: No
  Sender: FDA-Public Use
  Company Number: US-002147023-NVSC2023US127406

PATIENT
  Age: 5 Year
  Sex: Male

DRUGS (1)
  1. DABRAFENIB\TRAMETINIB [Suspect]
     Active Substance: DABRAFENIB\TRAMETINIB
     Indication: Immunoglobulins
     Route: 065

REACTIONS (1)
  - Pyrexia [Recovered/Resolved]
